FAERS Safety Report 4666890-2 (Version None)
Quarter: 2005Q2

REPORT INFORMATION
  Report Type: 
  Country: None (occurrence: None)
  Receive Date: 20050518
  Receipt Date: 20040506
  Transmission Date: 20051028
  Serious: Yes (Other)
  Sender: FDA-Public Use
  Company Number: 2004212485US

PATIENT
  Age: 29 Year
  Sex: Female
  Weight: 59 kg

DRUGS (2)
  1. DEPO-PROVERA [Suspect]
     Dosage: 1ST INJECTION;  MOST RECENT INJECTION
     Dates: start: 20020801, end: 20020801
  2. DEPO-PROVERA [Suspect]
     Dosage: 1ST INJECTION;  MOST RECENT INJECTION
     Dates: start: 20040315, end: 20040315

REACTIONS (3)
  - AMENORRHOEA [None]
  - GRAND MAL CONVULSION [None]
  - METRORRHAGIA [None]
